FAERS Safety Report 18399008 (Version 1)
Quarter: 2020Q4

REPORT INFORMATION
  Report Type: Spontaneous
  Country: US (occurrence: US)
  Receive Date: 20201019
  Receipt Date: 20201019
  Transmission Date: 20210114
  Serious: No
  Sender: FDA-Public Use
  Company Number: None

PATIENT
  Age: 40 Year
  Sex: Female
  Weight: 62.1 kg

DRUGS (9)
  1. PROZAC [Concomitant]
     Active Substance: FLUOXETINE HYDROCHLORIDE
  2. ADDERALL [Concomitant]
     Active Substance: AMPHETAMINE ASPARTATE\AMPHETAMINE SULFATE\DEXTROAMPHETAMINE SACCHARATE\DEXTROAMPHETAMINE SULFATE
  3. PROBIOTICS [Concomitant]
     Active Substance: PROBIOTICS NOS
  4. AMETHYST [Concomitant]
     Active Substance: ETHINYL ESTRADIOL\LEVONORGESTREL
  5. FISH OIL [Concomitant]
     Active Substance: FISH OIL
  6. RIZATRIPTAN. [Concomitant]
     Active Substance: RIZATRIPTAN
  7. MULTI-VITAMIN [Concomitant]
     Active Substance: .ALPHA.-TOCOPHEROL ACETATE, DL-\ASCORBIC ACID\CYANOCOBALAMIN\FLUORIDE ION\FOLIC ACID\NIACIN\PYRIDOXINE\RIBOFLAVIN\THIAMINE\VITAMIN A\VITAMIN D
  8. WELLBUTRIN [Concomitant]
     Active Substance: BUPROPION HYDROCHLORIDE
  9. DEXTROAMPHET SACCHARAT, AMPHET ASPARTATE, DEXTROAMPHET SULFATE AND AMPHET SULFAT [Suspect]
     Active Substance: AMPHETAMINE ASPARTATE\AMPHETAMINE SULFATE\DEXTROAMPHETAMINE SACCHARATE\DEXTROAMPHETAMINE SULFATE
     Indication: ATTENTION DEFICIT HYPERACTIVITY DISORDER
     Dosage: ?          QUANTITY:60 TABLET(S);?
     Route: 048
     Dates: start: 20201002, end: 20201010

REACTIONS (9)
  - Feeling abnormal [None]
  - Irritability [None]
  - Fatigue [None]
  - Agitation [None]
  - Drug ineffective [None]
  - Feeling of relaxation [None]
  - Somnolence [None]
  - Palpitations [None]
  - Product substitution issue [None]

NARRATIVE: CASE EVENT DATE: 20201003
